FAERS Safety Report 14972489 (Version 1)
Quarter: 2018Q2

REPORT INFORMATION
  Report Type: Spontaneous
  Country: DE (occurrence: DE)
  Receive Date: 20180605
  Receipt Date: 20180605
  Transmission Date: 20180711
  Serious: Yes (Hospitalization)
  Sender: FDA-Public Use
  Company Number: DE-TEVA-2018-DE-901938

PATIENT
  Age: 80 Year
  Sex: Male
  Weight: 56 kg

DRUGS (11)
  1. ALLOPURINOL. [Suspect]
     Active Substance: ALLOPURINOL
     Dosage: 0-1-0-0
     Route: 048
  2. COENZYM [Concomitant]
     Dosage: , 0-0-1-0
     Route: 048
  3. FLUVASTATIN [Concomitant]
     Active Substance: FLUVASTATIN SODIUM
     Dosage: 0-0-1-0
     Route: 048
  4. EPLERENON [Concomitant]
     Active Substance: EPLERENONE
     Dosage: 1-0-0-0
     Route: 048
  5. TORASEMID [Concomitant]
     Active Substance: TORSEMIDE
     Dosage: , 1-0.5-0.5-0
     Route: 048
  6. MAGNESIUM [Concomitant]
     Active Substance: MAGNESIUM
     Dosage: 0-0-1-0
     Route: 048
  7. PHENPROCOUMON [Suspect]
     Active Substance: PHENPROCOUMON
     Dosage: NACH INR
     Route: 048
  8. DIGITOXIN [Concomitant]
     Active Substance: DIGITOXIN
     Dosage: 1-0-0-0
     Route: 048
  9. EISEN [Concomitant]
     Dosage: 0-1-0-0
     Route: 048
  10. METOPROLOL. [Concomitant]
     Active Substance: METOPROLOL
     Dosage: 0.5-0-0.5-0
     Route: 048
  11. AQUAPHOR [Concomitant]
     Active Substance: PETROLATUM
     Dosage: 1-0-0-0
     Route: 048

REACTIONS (1)
  - Respiratory tract haemorrhage [Unknown]

NARRATIVE: CASE EVENT DATE: 20151109
